FAERS Safety Report 16880077 (Version 1)
Quarter: 2019Q4

REPORT INFORMATION
  Report Type: Spontaneous
  Country: US (occurrence: US)
  Receive Date: 20190807
  Receipt Date: 20190807
  Transmission Date: 20200122
  Serious: No
  Sender: FDA-Public Use
  Company Number: None

PATIENT
  Sex: Female

DRUGS (1)
  1. SPRYCEL [Suspect]
     Active Substance: DASATINIB
     Indication: ACUTE LYMPHOCYTIC LEUKAEMIA
     Route: 038
     Dates: start: 201904

REACTIONS (4)
  - Therapy cessation [None]
  - Leukaemia recurrent [None]
  - Blood test abnormal [None]
  - Nausea [None]

NARRATIVE: CASE EVENT DATE: 20190703
